FAERS Safety Report 8220560-2 (Version None)
Quarter: 2012Q1

REPORT INFORMATION
  Report Type: 
  Country: None (occurrence: None)
  Receive Date: 20120320
  Receipt Date: 20120312
  Transmission Date: 20120608
  Serious: Yes (Hospitalization, Other)
  Sender: FDA-Public Use
  Company Number: US-COVIDIEN/TYCO HEALTHCARE/MALLINCKRODT-T201201039

PATIENT
  Age: 78 Year
  Sex: Male
  Weight: 84.5 kg

DRUGS (31)
  1. METFORMIN HYDROCHLORIDE [Suspect]
     Dosage: 1000 MG
  2. CIPROFLOXACIN [Suspect]
     Indication: URINARY TRACT INFECTION
     Dosage: UNK
  3. CINACALCET HYDROCHLORIDE [Concomitant]
     Dosage: 30 MG
  4. RANITIDINE [Concomitant]
     Dosage: 150 MG
  5. INSULIN                            /00646001/ [Concomitant]
     Dosage: UNK
  6. DIPHENHYDRAMINE HCL [Suspect]
  7. LISINOPRIL [Concomitant]
     Dosage: 2.5 MG
  8. NAPROXEN [Concomitant]
     Dosage: 500 MG
  9. ERGOCALCIFEROL [Concomitant]
     Dosage: 5,000 UNITS
  10. SIMVASTATIN [Concomitant]
     Dosage: 80 MG
  11. ALLOPURINOL [Concomitant]
     Dosage: 100 MG
  12. BACLOFEN [Concomitant]
     Dosage: 10 MG
  13. COLCHICINE [Concomitant]
     Dosage: 0.6 MG
  14. HYDROCODONE W/APAP                 /01554201/ [Concomitant]
     Dosage: 5/500 MG
  15. VITAMIN E                          /00110501/ [Concomitant]
     Dosage: 100 UNITS
  16. MORPHINE [Suspect]
     Indication: ANALGESIC THERAPY
     Dosage: UNK
  17. FUROSEMIDE [Suspect]
     Dosage: 20 MG
  18. CAPSAICIN [Concomitant]
     Dosage: 60 G (0.25%)
  19. FERROUS SULFATE TAB [Concomitant]
     Dosage: 325 MG
  20. OMEPRAZOLE [Concomitant]
     Dosage: 20 MG
  21. CEFTRIAXONE [Concomitant]
     Indication: URINARY TRACT INFECTION
     Dosage: UNK
  22. ACETAMINOPHEN [Concomitant]
     Dosage: 500 MG
  23. FINASTERIDE [Concomitant]
     Dosage: 5 MG
  24. OXYCODONE/ACETAMINOPHEN [Suspect]
     Indication: ANALGESIC THERAPY
     Dosage: 5-10/500 MG
  25. CLONIDINE [Concomitant]
     Dosage: 0.1 MG
  26. DOCUSATE [Concomitant]
     Dosage: 250 MG
  27. VARDENAFIL HYDROCHLORIDE (LEVITRA) [Concomitant]
     Dosage: 20 MG
  28. ASPIRIN [Concomitant]
     Dosage: 81 MG
  29. DESIPRAMINE HCL [Suspect]
     Dosage: 50 MG
  30. GABAPENTIN [Suspect]
     Dosage: 100 MG
  31. TERAZOSIN HCL [Concomitant]
     Dosage: 2 MG

REACTIONS (5)
  - MEDICATION ERROR [None]
  - DRUG INTERACTION [None]
  - CONFUSIONAL STATE [None]
  - AGITATION [None]
  - DELIRIUM [None]
